FAERS Safety Report 12252206 (Version 1)
Quarter: 2016Q2

REPORT INFORMATION
  Report Type: Report from Study
  Country: CA (occurrence: CA)
  Receive Date: 20160411
  Receipt Date: 20160411
  Transmission Date: 20160815
  Serious: No
  Sender: FDA-Public Use
  Company Number: PHHY2015CA131327

PATIENT
  Sex: Female

DRUGS (2)
  1. TAFINLAR [Suspect]
     Active Substance: DABRAFENIB MESYLATE
     Indication: METASTATIC MALIGNANT MELANOMA
     Dosage: 300 MG, QD
     Route: 048
     Dates: start: 20150731
  2. MEKINIST [Suspect]
     Active Substance: TRAMETINIB DIMETHYL SULFOXIDE
     Indication: METASTATIC MALIGNANT MELANOMA
     Dosage: 2 MG, QD
     Route: 048
     Dates: start: 20150731

REACTIONS (11)
  - Tension [Unknown]
  - Paramnesia [Unknown]
  - Oral mucosal blistering [Unknown]
  - Decreased appetite [Unknown]
  - Parosmia [Unknown]
  - Dehydration [Unknown]
  - White blood cell count decreased [Unknown]
  - Energy increased [Unknown]
  - Visual impairment [Unknown]
  - Headache [Unknown]
  - Emotional disorder [Unknown]
